FAERS Safety Report 6305224-4 (Version None)
Quarter: 2009Q3

REPORT INFORMATION
  Report Type: 
  Country: None (occurrence: None)
  Receive Date: 20090811
  Receipt Date: 20090806
  Transmission Date: 20100115
  Serious: Yes (Death, Hospitalization)
  Sender: FDA-Public Use
  Company Number: DE-AVENTIS-200911529DE

PATIENT
  Age: 78 Year
  Sex: Male

DRUGS (2)
  1. TAXOTERE [Suspect]
     Route: 042
     Dates: start: 20081106, end: 20081229
  2. FUROSEMID [Concomitant]
     Dosage: DOSE: NOT REPORTED

REACTIONS (2)
  - FLUID RETENTION [None]
  - SEPSIS [None]
